FAERS Safety Report 24738596 (Version 2)
Quarter: 2025Q2

REPORT INFORMATION
  Report Type: Report from Study
  Country: GB (occurrence: GB)
  Receive Date: 20241216
  Receipt Date: 20250403
  Transmission Date: 20250717
  Serious: Yes (Death, Other)
  Sender: TEVA
  Company Number: GB-TEVA-VS-3274944

PATIENT
  Age: 20 Year
  Sex: Male

DRUGS (3)
  1. FLUOXETINE [Suspect]
     Active Substance: FLUOXETINE HYDROCHLORIDE
     Indication: Bipolar disorder
     Route: 065
  2. LITHIUM [Suspect]
     Active Substance: LITHIUM
     Indication: Bipolar disorder
     Route: 065
  3. LYSERGIDE [Suspect]
     Active Substance: LYSERGIDE
     Indication: Drug abuse
     Route: 065

REACTIONS (4)
  - Generalised tonic-clonic seizure [Fatal]
  - Toxicity to various agents [Fatal]
  - Accidental poisoning [Fatal]
  - Serotonin syndrome [Unknown]
